FAERS Safety Report 8932607 (Version 1)
Quarter: 2012Q4

REPORT INFORMATION
  Report Type: Spontaneous
  Country: ES (occurrence: None)
  Receive Date: 20121119
  Receipt Date: 20121119
  Transmission Date: 20130627
  Serious: Yes (Hospitalization)
  Sender: FDA-Public Use
  Company Number: 1481794

PATIENT
  Age: 59 Year
  Sex: Male

DRUGS (2)
  1. GEMCITABINE HYDROCHLORIDE [Suspect]
     Indication: LUNG NEOPLASM MALIGNANT
     Route: 041
     Dates: start: 20120404
  2. CARBOPLATIN [Suspect]
     Route: 041
     Dates: start: 20120404

REACTIONS (5)
  - Mucosal inflammation [None]
  - Oesophagitis [None]
  - Anaemia [None]
  - Febrile neutropenia [None]
  - Thrombocytopenia [None]
